FAERS Safety Report 5830735-5 (Version None)
Quarter: 2008Q3

REPORT INFORMATION
  Report Type: 
  Country: None (occurrence: None)
  Receive Date: 20080801
  Receipt Date: 20071031
  Transmission Date: 20090109
  Serious: Yes (Hospitalization)
  Sender: FDA-Public Use
  Company Number: US-BRISTOL-MYERS SQUIBB COMPANY-13965181

PATIENT
  Age: 89 Year
  Sex: Male

DRUGS (3)
  1. COUMADIN [Suspect]
  2. PROSCAR [Concomitant]
  3. FLOMAX [Concomitant]

REACTIONS (2)
  - DRUG DISPENSING ERROR [None]
  - HAEMORRHAGE [None]
